FAERS Safety Report 22138414 (Version 3)
Quarter: 2023Q2

REPORT INFORMATION
  Report Type: Spontaneous
  Country: IL (occurrence: IL)
  Receive Date: 20230326
  Receipt Date: 20230403
  Transmission Date: 20230721
  Serious: Yes (Life-Threatening)
  Sender: FDA-Public Use
  Company Number: IL-TEVA-2023-IL-2869152

PATIENT
  Age: 58 Year
  Sex: Female

DRUGS (1)
  1. PACLITAXEL [Suspect]
     Active Substance: PACLITAXEL
     Indication: Uterine leiomyosarcoma
     Dosage: 240 MG
     Route: 065

REACTIONS (6)
  - Dyspnoea [Unknown]
  - Erythema [Unknown]
  - Chest discomfort [Unknown]
  - Loss of consciousness [Unknown]
  - Hot flush [Unknown]
  - Cold sweat [Unknown]

NARRATIVE: CASE EVENT DATE: 20230206
